FAERS Safety Report 14187968 (Version 1)
Quarter: 2017Q4

REPORT INFORMATION
  Report Type: Spontaneous
  Country: US (occurrence: US)
  Receive Date: 20171114
  Receipt Date: 20171114
  Transmission Date: 20180321
  Serious: Yes (Hospitalization)
  Sender: FDA-Public Use
  Company Number: US-PFIZER INC-2017484872

PATIENT
  Age: 60 Year
  Sex: Female
  Weight: 55.78 kg

DRUGS (2)
  1. LYRICA [Suspect]
     Active Substance: PREGABALIN
     Dosage: 1 DF, DAILY
     Route: 048
     Dates: end: 201710
  2. LYRICA [Suspect]
     Active Substance: PREGABALIN
     Indication: BURNING SENSATION
     Dosage: 300 MG, 2X/DAY
     Route: 048
     Dates: start: 2012

REACTIONS (9)
  - Dizziness [Unknown]
  - Insomnia [Unknown]
  - Somnolence [Unknown]
  - Musculoskeletal discomfort [Unknown]
  - Nausea [Unknown]
  - Confusional state [Unknown]
  - Heart rate increased [Unknown]
  - Hypoaesthesia [Unknown]
  - Hallucination [Unknown]

NARRATIVE: CASE EVENT DATE: 201710
